FAERS Safety Report 4361546-8 (Version None)
Quarter: 2004Q2

REPORT INFORMATION
  Report Type: 
  Country: None (occurrence: None)
  Receive Date: 20040517
  Receipt Date: 20040504
  Transmission Date: 20050107
  Serious: Yes (Other)
  Sender: FDA-Public Use
  Company Number: HQWYE718405MAY04

PATIENT
  Sex: Female

DRUGS (2)
  1. PROTONIX [Suspect]
     Dosage: ORAL
     Route: 048
  2. ZYRTEC [Suspect]

REACTIONS (1)
  - VISUAL ACUITY REDUCED [None]
